FAERS Safety Report 5149257-2 (Version None)
Quarter: 2006Q4

REPORT INFORMATION
  Report Type: 
  Country: None (occurrence: None)
  Receive Date: 20061113
  Receipt Date: 20051010
  Transmission Date: 20070319
  Serious: No
  Sender: FDA-Public Use
  Company Number: 420704

PATIENT
  Age: 61 Year
  Sex: Female

DRUGS (8)
  1. COREG [Suspect]
     Indication: TACHYCARDIA
     Dosage: 3.125MG TWICE PER DAY
     Route: 048
     Dates: start: 20050501
  2. LEVOTHROID [Concomitant]
  3. CORTEF [Concomitant]
  4. LORAZEPAM [Concomitant]
  5. MYOCALCINNS [Concomitant]
  6. PEPCID [Concomitant]
  7. FOLIC ACID [Concomitant]
  8. ANACIN [Concomitant]

REACTIONS (9)
  - ASTHENIA [None]
  - BLOOD PRESSURE DECREASED [None]
  - DIZZINESS [None]
  - DRY MOUTH [None]
  - FEELING COLD [None]
  - HYPERHIDROSIS [None]
  - NAUSEA [None]
  - PARAESTHESIA [None]
  - VISUAL DISTURBANCE [None]
